FAERS Safety Report 22122588 (Version 2)
Quarter: 2023Q1

REPORT INFORMATION
  Report Type: Report from Study
  Country: US (occurrence: US)
  Receive Date: 20230321
  Receipt Date: 20230324
  Transmission Date: 20230417
  Serious: Yes (Death, Hospitalization)
  Sender: FDA-Public Use
  Company Number: US-SEATTLE GENETICS-2023SGN02825

PATIENT
  Age: 52 Year
  Sex: Male
  Weight: 64.9 kg

DRUGS (17)
  1. BRENTUXIMAB VEDOTIN [Suspect]
     Active Substance: BRENTUXIMAB VEDOTIN
     Indication: Peripheral T-cell lymphoma unspecified
     Dosage: 1.8 MG/KG, ON DAYS 1 OF EVERY 21-DAY CYCLE
     Route: 042
     Dates: start: 20221219, end: 20230303
  2. CYCLOPHOSPHAMIDE [Suspect]
     Active Substance: CYCLOPHOSPHAMIDE
     Indication: Peripheral T-cell lymphoma unspecified
     Dosage: 750 MG/M2, ON DAY 1 OF EACH CYCLE
     Route: 042
     Dates: start: 20221219, end: 20230303
  3. DOXORUBICIN [Suspect]
     Active Substance: DOXORUBICIN
     Indication: Peripheral T-cell lymphoma unspecified
     Dosage: 50 MG/M2, ON DAY 1 OF EACH CYCLE
     Route: 042
     Dates: start: 20221219, end: 20230303
  4. PREDNISONE [Suspect]
     Active Substance: PREDNISONE
     Indication: Peripheral T-cell lymphoma unspecified
     Dosage: 100 MG, QD, ON DAYS 1-5 (+-1 DAY WINDOW) OF EACH CYCLE
     Route: 048
     Dates: start: 20221219, end: 20230307
  5. DELTASONE [Concomitant]
     Active Substance: PREDNISONE
     Indication: Lymphoma
     Dosage: 10 MG, 3 TABLETS QD, FOR 3 DAYS
     Route: 048
     Dates: start: 20221209, end: 20221212
  6. BACTROBAN [Concomitant]
     Active Substance: MUPIROCIN\MUPIROCIN CALCIUM
     Indication: Rash
     Dosage: 2 %, BID
     Route: 061
     Dates: start: 20221209
  7. KEFLEX [Concomitant]
     Active Substance: CEPHALEXIN
     Indication: Skin infection
     Dosage: 500 MG, QID
     Route: 048
     Dates: start: 20221209, end: 20221214
  8. LASIX [Concomitant]
     Active Substance: FUROSEMIDE
     Indication: Hypervolaemia
     Dosage: 40 MG, BID
     Route: 048
     Dates: start: 20221124
  9. XANAX [Concomitant]
     Active Substance: ALPRAZOLAM
     Indication: Anxiety
     Dosage: 0.5 MG, TID, FOR 30 DAYS
     Route: 048
     Dates: start: 20221202
  10. HYDROMORPHONE [Concomitant]
     Active Substance: HYDROMORPHONE
     Indication: Cancer pain
     Dosage: 2 MG, Q6HR, PRN, FOR UP TO 15 DAYS
     Route: 048
     Dates: start: 20221124
  11. ALDACTONE [Concomitant]
     Active Substance: SPIRONOLACTONE
     Indication: Hypervolaemia
     Dosage: 25 MG, BID
     Route: 048
     Dates: start: 20221202, end: 20230110
  12. THIAMINE [Concomitant]
     Active Substance: THIAMINE
     Indication: Vitamin supplementation
     Dosage: 100 MG, TID, FOR 268 DOSES
     Route: 048
     Dates: start: 20221124
  13. NARCAN [Concomitant]
     Active Substance: NALOXONE HYDROCHLORIDE
     Indication: Emergency care
     Dosage: 1 SPRAY IN ONE NOSTRIL, PRN, MAY REPEAT EVERY 2 TO 3 MIN IN ALTERNATING NOSTRILS UNTIL MEDICAL ASSIS
     Route: 045
     Dates: start: 20221125
  14. PANTOPRAZOLE SODIUM [Concomitant]
     Active Substance: PANTOPRAZOLE SODIUM
     Indication: Gastrooesophageal reflux disease
     Dosage: UNK
     Route: 048
     Dates: start: 20221031
  15. MILK OF MAGNESIA [Concomitant]
     Active Substance: MAGNESIUM HYDROXIDE
     Indication: Constipation
     Dosage: 30 TO 60 ML, QD
     Route: 048
     Dates: start: 20221214
  16. COLACE [Concomitant]
     Active Substance: DOCUSATE SODIUM
     Indication: Constipation
     Dosage: 100 MG, BID
     Route: 065
     Dates: start: 20230110
  17. NYSTATIN [Concomitant]
     Active Substance: NYSTATIN
     Indication: Stomatitis
     Dosage: 1 ML, QID, SWISH AND SWALLOW
     Route: 048
     Dates: start: 20221229

REACTIONS (2)
  - Decreased appetite [Fatal]
  - Upper respiratory tract infection [Unknown]

NARRATIVE: CASE EVENT DATE: 20230311
